FAERS Safety Report 4432127-2 (Version None)
Quarter: 2004Q3

REPORT INFORMATION
  Report Type: 
  Country: None (occurrence: None)
  Receive Date: 20040820
  Receipt Date: 20040806
  Transmission Date: 20050211
  Serious: Yes (Other)
  Sender: FDA-Public Use
  Company Number: 2004-DE-04345GD

PATIENT

DRUGS (5)
  1. METHADONE HCL [Suspect]
     Indication: DRUG WITHDRAWAL SYNDROME
     Dosage: 55 MG
  2. DIDANOSINE (DIDANOSINE) [Suspect]
     Indication: HIV INFECTION
     Dosage: ONCE DAILY
     Dates: start: 20010301
  3. STAVUDINE (STAVUDINE) [Suspect]
     Indication: HIV INFECTION
     Dosage: ONCE DAILY
     Dates: start: 20010301
  4. EMTRICITABINE (EMTRICITABINE) [Suspect]
     Indication: HIV INFECTION
     Dosage: ONCE DAILY
     Dates: start: 20010301
  5. EFAVIRENZ (EFAVIRENZ) [Suspect]
     Indication: HIV INFECTION
     Dosage: ONCE DAILY
     Dates: start: 20010301

REACTIONS (2)
  - DRUG LEVEL DECREASED [None]
  - LIVER FUNCTION TEST ABNORMAL [None]
